FAERS Safety Report 14862131 (Version 1)
Quarter: 2018Q2

REPORT INFORMATION
  Report Type: Spontaneous
  Country: GB (occurrence: GB)
  Receive Date: 20180508
  Receipt Date: 20180508
  Transmission Date: 20180711
  Serious: Yes (Hospitalization, Other)
  Sender: FDA-Public Use
  Company Number: GB-JNJFOC-199704-0086

PATIENT
  Age: 18 Year
  Sex: Male

DRUGS (1)
  1. PSEUDOEPHEDRINE HYDROCHLORIDE. [Suspect]
     Active Substance: PSEUDOEPHEDRINE HYDROCHLORIDE
     Indication: PRODUCT USED FOR UNKNOWN INDICATION
     Route: 042

REACTIONS (6)
  - Acute psychosis [Recovered/Resolved]
  - Drug abuse [Unknown]
  - Psychomotor hyperactivity [Recovered/Resolved]
  - Hallucination, tactile [Recovered/Resolved]
  - Incorrect route of drug administration [Unknown]
  - Visual impairment [Recovered/Resolved]
